FAERS Safety Report 4358638-6 (Version None)
Quarter: 2004Q2

REPORT INFORMATION
  Report Type: 
  Country: None (occurrence: None)
  Receive Date: 20040507
  Receipt Date: 20040423
  Transmission Date: 20050107
  Serious: Yes (Other)
  Sender: FDA-Public Use
  Company Number: 200310701BCA

PATIENT
  Age: 25 Year
  Sex: Female

DRUGS (19)
  1. GAMIMUNE N, 10% [Suspect]
     Indication: THROMBOCYTOPENIA NEONATAL
     Dates: start: 20030625
  2. GAMIMUNE N, 10% [Suspect]
     Indication: THROMBOCYTOPENIA NEONATAL
     Dates: start: 20030707
  3. GAMIMUNE N, 10% [Suspect]
     Indication: THROMBOCYTOPENIA NEONATAL
     Dates: start: 20030721
  4. GAMIMUNE N, 10% [Suspect]
     Indication: THROMBOCYTOPENIA NEONATAL
     Dates: start: 20030805
  5. GAMIMUNE N, 10% [Suspect]
     Indication: THROMBOCYTOPENIA NEONATAL
     Dates: start: 20030818
  6. GAMIMUNE N, 10% [Suspect]
     Indication: THROMBOCYTOPENIA NEONATAL
     Dates: start: 20030905
  7. GAMIMUNE N, 10% [Suspect]
     Indication: THROMBOCYTOPENIA NEONATAL
     Dates: start: 20030905
  8. GAMIMUNE N, 10% [Suspect]
     Indication: THROMBOCYTOPENIA NEONATAL
     Dates: start: 20030915
  9. GAMIMUNE N, 10% [Suspect]
     Indication: THROMBOCYTOPENIA NEONATAL
     Dates: start: 20030922
  10. GAMIMUNE N, 10% [Suspect]
     Indication: THROMBOCYTOPENIA NEONATAL
     Dates: start: 20030929
  11. GAMIMUNE N, 10% [Suspect]
  12. GAMIMUNE N, 10% [Suspect]
  13. GAMIMUNE N, 10% [Suspect]
  14. GAMIMUNE N, 10% [Suspect]
  15. GAMIMUNE N, 10% [Suspect]
  16. GAMIMUNE N, 10% [Suspect]
  17. GAMIMUNE N, 10% [Suspect]
  18. GAMIMUNE N, 10% [Suspect]
  19. GAMIMUNE N, 10% [Suspect]

REACTIONS (3)
  - CAESAREAN SECTION [None]
  - COMPLICATIONS OF MATERNAL EXPOSURE TO THERAPEUTIC DRUGS [None]
  - HTLV-1 ANTIBODY POSITIVE [None]
